FAERS Safety Report 11311882 (Version 1)
Quarter: 2015Q3

REPORT INFORMATION
  Report Type: Spontaneous
  Country: US (occurrence: None)
  Receive Date: 20150724
  Receipt Date: 20150724
  Transmission Date: 20151125
  Serious: No
  Sender: FDA-Public Use
  Company Number: None

PATIENT
  Age: 73 Year
  Sex: Male

DRUGS (3)
  1. WARFARIN [Concomitant]
     Active Substance: WARFARIN
  2. HEPARIN [Suspect]
     Active Substance: HEPARIN SODIUM
     Indication: ANTICOAGULANT THERAPY
     Dosage: 800 UNITS/HR CONTINUOUS IV
     Route: 042
     Dates: start: 20150407, end: 20150409
  3. HEPARIN [Suspect]
     Active Substance: HEPARIN SODIUM
     Dosage: 5000 UNITS  EVERY 8 HOURS SC
     Route: 058

REACTIONS (1)
  - Platelet count decreased [None]

NARRATIVE: CASE EVENT DATE: 20150416
